FAERS Safety Report 23525481 (Version 2)
Quarter: 2024Q1

REPORT INFORMATION
  Report Type: Spontaneous
  Country: US (occurrence: US)
  Receive Date: 20240215
  Receipt Date: 20240221
  Transmission Date: 20240410
  Serious: Yes (Other)
  Sender: FDA-Public Use
  Company Number: SCLX2400003

PATIENT
  Age: 67 Year
  Sex: Female

DRUGS (2)
  1. ZTLIDO [Suspect]
     Active Substance: LIDOCAINE
     Indication: Product used for unknown indication
     Dosage: SINGE-DOSE TOPICAL SYSTEM
     Route: 061
     Dates: start: 20240110
  2. ZTLIDO [Suspect]
     Active Substance: LIDOCAINE
     Dosage: SINGE-DOSE TOPICAL SYSTEM
     Route: 061
     Dates: start: 20240111

REACTIONS (14)
  - Anaphylactic reaction [Recovered/Resolved]
  - Wheezing [Recovered/Resolved]
  - Lymphadenopathy [Recovered/Resolved]
  - Swelling [Recovered/Resolved]
  - Dysphonia [Recovered/Resolved]
  - Pharyngeal erythema [Recovered/Resolved]
  - Sinus congestion [Recovered/Resolved]
  - Ear congestion [Recovered/Resolved]
  - Oropharyngeal pain [Recovered/Resolved]
  - Urticaria [Recovered/Resolved]
  - Dyspnoea [Recovered/Resolved]
  - Pharyngeal swelling [Recovered/Resolved]
  - Hypersensitivity [Recovered/Resolved]
  - Accidental exposure to product [Recovered/Resolved]

NARRATIVE: CASE EVENT DATE: 20240110
